FAERS Safety Report 14598281 (Version 3)
Quarter: 2018Q2

REPORT INFORMATION
  Report Type: Spontaneous
  Country: US (occurrence: US)
  Receive Date: 20180305
  Receipt Date: 20180504
  Transmission Date: 20180711
  Serious: Yes (Other)
  Sender: FDA-Public Use
  Company Number: US-JNJFOC-20180231984

PATIENT
  Age: 71 Year
  Sex: Female

DRUGS (10)
  1. ACYCLOVIR. [Concomitant]
     Active Substance: ACYCLOVIR
     Dosage: 100 MCG DAILY MONDAY -SATURDAY: 200 MCG ON SUNDAY
  2. IMBRUVICA [Suspect]
     Active Substance: IBRUTINIB
     Indication: CHRONIC LYMPHOCYTIC LEUKAEMIA
     Route: 048
     Dates: start: 20170629
  3. LOSARTAN POTASSIUM. [Concomitant]
     Active Substance: LOSARTAN POTASSIUM
     Indication: HYPERTENSION
  4. IMBRUVICA [Suspect]
     Active Substance: IBRUTINIB
     Indication: CHRONIC LYMPHOCYTIC LEUKAEMIA
     Route: 048
     Dates: start: 201707
  5. ATIVAN [Concomitant]
     Active Substance: LORAZEPAM
     Dosage: 100 MCG DAILY MONDAY -SATURDAY: 200 MCG ON SUNDAY
  6. LEVOTHYROXINE SODIUM. [Concomitant]
     Active Substance: LEVOTHYROXINE SODIUM
     Indication: THYROIDECTOMY
     Dosage: 100 MCG DAILY MONDAY -SATURDAY: 200 MCG ON SUNDAY
  7. BACTRIM [Concomitant]
     Active Substance: SULFAMETHOXAZOLE\TRIMETHOPRIM
     Dosage: 100 MCG DAILY MONDAY -SATURDAY: 200 MCG ON SUNDAY
  8. SIMVASTATIN. [Concomitant]
     Active Substance: SIMVASTATIN
     Dosage: 100 MCG DAILY MONDAY -SATURDAY: 200 MCG ON SUNDAY
  9. AMBIEN [Concomitant]
     Active Substance: ZOLPIDEM TARTRATE
     Dosage: 100 MCG DAILY MONDAY -SATURDAY: 200 MCG ON SUNDAY
  10. IMBRUVICA [Suspect]
     Active Substance: IBRUTINIB
     Indication: CHRONIC LYMPHOCYTIC LEUKAEMIA
     Route: 048
     Dates: start: 20170628, end: 20180216

REACTIONS (6)
  - Ventricular extrasystoles [Unknown]
  - Incorrect dosage administered [Unknown]
  - Off label use [Unknown]
  - Blood count abnormal [Recovered/Resolved]
  - Onychoclasis [Not Recovered/Not Resolved]
  - Atrial fibrillation [Recovering/Resolving]

NARRATIVE: CASE EVENT DATE: 201707
